FAERS Safety Report 10777826 (Version 3)
Quarter: 2015Q2

REPORT INFORMATION
  Report Type: Report from Study
  Country: DE (occurrence: DE)
  Receive Date: 20150209
  Receipt Date: 20150402
  Transmission Date: 20150821
  Serious: Yes (Hospitalization, Other)
  Sender: FDA-Public Use
  Company Number: DE-ABBVIE-15K-062-1342041-00

PATIENT
  Age: 23 Year
  Sex: Female
  Weight: 71.5 kg

DRUGS (6)
  1. HUMIRA [Suspect]
     Active Substance: ADALIMUMAB
     Route: 058
     Dates: end: 201501
  2. ZANTAC [Concomitant]
     Active Substance: RANITIDINE HYDROCHLORIDE
     Indication: CROHN^S DISEASE
     Route: 048
     Dates: start: 200906, end: 201410
  3. PREDNISOLONE. [Concomitant]
     Active Substance: PREDNISOLONE
     Indication: PRODUCT USED FOR UNKNOWN INDICATION
  4. HUMIRA [Suspect]
     Active Substance: ADALIMUMAB
     Route: 058
     Dates: start: 201303, end: 201410
  5. HUMIRA [Suspect]
     Active Substance: ADALIMUMAB
     Indication: CROHN^S DISEASE
     Route: 058
     Dates: start: 201009
  6. HUMIRA [Suspect]
     Active Substance: ADALIMUMAB
     Route: 058
     Dates: start: 201010, end: 201203

REACTIONS (14)
  - Drug effect decreased [Recovered/Resolved]
  - Pyrexia [Unknown]
  - Colitis ulcerative [Unknown]
  - Anal stenosis [Unknown]
  - Arthralgia [Unknown]
  - Crohn^s disease [Unknown]
  - Psoriasis [Recovered/Resolved]
  - Arthralgia [Recovered/Resolved]
  - Mucosal ulceration [Unknown]
  - Intestinal mucosal hypertrophy [Unknown]
  - Fistula [Unknown]
  - Abdominal pain lower [Unknown]
  - Vulval abscess [Recovering/Resolving]
  - Weight decreased [Unknown]

NARRATIVE: CASE EVENT DATE: 201410
